FAERS Safety Report 9904767 (Version 1)
Quarter: 2014Q1

REPORT INFORMATION
  Report Type: Spontaneous
  Country: US (occurrence: US)
  Receive Date: 20140218
  Receipt Date: 20140218
  Transmission Date: 20141002
  Serious: No
  Sender: FDA-Public Use
  Company Number: US-BAYER-2014-020971

PATIENT
  Age: 85 Year
  Sex: Male
  Weight: 112 kg

DRUGS (4)
  1. ALEVE CAPLET [Suspect]
     Indication: ARTHRITIS
     Dosage: 2 DF, BID
     Route: 048
     Dates: start: 201311, end: 201401
  2. LISINOPRIL [Concomitant]
  3. FUROSEMIDE [Concomitant]
  4. TERAZOSIN [Concomitant]

REACTIONS (9)
  - Oral pain [Recovered/Resolved]
  - Swollen tongue [Recovered/Resolved]
  - Tongue discolouration [Recovered/Resolved]
  - Plicated tongue [Recovered/Resolved]
  - Lip oedema [Recovered/Resolved]
  - Cheilitis [Recovered/Resolved]
  - Lip ulceration [Recovered/Resolved]
  - Influenza like illness [Recovered/Resolved]
  - Extra dose administered [None]
